FAERS Safety Report 7678227-5 (Version None)
Quarter: 2011Q3

REPORT INFORMATION
  Report Type: 
  Country: None (occurrence: None)
  Receive Date: 20110811
  Receipt Date: 20110802
  Transmission Date: 20111222
  Serious: Yes (Hospitalization)
  Sender: FDA-Public Use
  Company Number: IT-TEVA-294740ISR

PATIENT
  Sex: Male

DRUGS (2)
  1. ACETAMINOPHEN [Suspect]
     Indication: TOOTH INFECTION
     Dosage: 1 DOSAGE 2 G EVERY DAY
     Route: 048
     Dates: start: 20110707, end: 20110713
  2. AMOXICILLIN [Suspect]
     Indication: TOOTH INFECTION
     Dosage: 1 DOSAGE 2 G EVERY DAY
     Route: 048
     Dates: start: 20110707, end: 20110713

REACTIONS (2)
  - HEPATITIS ACUTE [None]
  - BILE DUCT STONE [None]
